FAERS Safety Report 4476453-X (Version None)
Quarter: 2004Q4

REPORT INFORMATION
  Report Type: 
  Country: None (occurrence: None)
  Receive Date: 20041012
  Receipt Date: 20040927
  Transmission Date: 20050328
  Serious: Yes (Death, Other)
  Sender: FDA-Public Use
  Company Number: 2004071266

PATIENT
  Age: 34 Year

DRUGS (3)
  1. ZIPRASIDONE (CAPS) (ZIPRASIDONE) [Suspect]
     Indication: ILL-DEFINED DISORDER
  2. OLANZAPINE [Suspect]
     Indication: ILL-DEFINED DISORDER
  3. CLONAZEPAM [Suspect]
     Indication: ILL-DEFINED DISORDER

REACTIONS (3)
  - CARDIO-RESPIRATORY ARREST [None]
  - COMPLETED SUICIDE [None]
  - MULTIPLE DRUG OVERDOSE [None]
